FAERS Safety Report 9053422 (Version 1)
Quarter: 2013Q1

REPORT INFORMATION
  Report Type: Spontaneous
  Country: GR (occurrence: GR)
  Receive Date: 20130208
  Receipt Date: 20130208
  Transmission Date: 20140127
  Serious: Yes (Hospitalization)
  Sender: FDA-Public Use
  Company Number: PHHY2012GR098057

PATIENT
  Age: 18 Year
  Sex: Female

DRUGS (2)
  1. EXTAVIA [Suspect]
     Indication: MULTIPLE SCLEROSIS
     Dosage: 1 UKN, UNK
     Dates: start: 20121024
  2. EXTAVIA [Suspect]
     Dosage: UNK
     Dates: start: 20130206

REACTIONS (5)
  - Arthralgia [Unknown]
  - Transaminases increased [Unknown]
  - Fatigue [Unknown]
  - Pyrexia [Unknown]
  - Pain in extremity [Unknown]
